FAERS Safety Report 20739619 (Version 1)
Quarter: 2022Q2

REPORT INFORMATION
  Report Type: Spontaneous
  Country: US (occurrence: None)
  Receive Date: 20220422
  Receipt Date: 20220422
  Transmission Date: 20220721
  Serious: No
  Sender: FDA-Public Use
  Company Number: None

PATIENT
  Sex: Male

DRUGS (1)
  1. LENALIDOMIDE [Suspect]
     Active Substance: LENALIDOMIDE
     Indication: Non-Hodgkin^s lymphoma
     Dosage: OTHER FREQUENCY : DAILY FOR 21 DAYS ON AND 7 DAYS OFF.?
     Route: 048
     Dates: start: 20220323

REACTIONS (2)
  - Extra dose administered [None]
  - Product appearance confusion [None]
